FAERS Safety Report 14885500 (Version 1)
Quarter: 2018Q2

REPORT INFORMATION
  Report Type: Spontaneous
  Country: US (occurrence: US)
  Receive Date: 20180511
  Receipt Date: 20180511
  Transmission Date: 20180711
  Serious: No
  Sender: FDA-Public Use
  Company Number: US-AMGEN-USASP2018037375

PATIENT
  Age: 70 Year
  Sex: Female
  Weight: 83.5 kg

DRUGS (3)
  1. PARSABIV [Suspect]
     Active Substance: ETELCALCETIDE HYDROCHLORIDE
     Indication: PRODUCT USED FOR UNKNOWN INDICATION
     Dosage: 2.5 MG, 3 TIMES/WK
     Route: 042
     Dates: start: 20180202
  2. PARSABIV [Suspect]
     Active Substance: ETELCALCETIDE HYDROCHLORIDE
     Dosage: 2.5 MG, 2 TIMES/WK
     Route: 042
     Dates: start: 201803
  3. PARSABIV [Suspect]
     Active Substance: ETELCALCETIDE HYDROCHLORIDE
     Dosage: 2.5 MG, QWK
     Route: 042
     Dates: start: 201803, end: 201803

REACTIONS (4)
  - Hypercalcaemia [Unknown]
  - Muscular weakness [Recovering/Resolving]
  - Hypocalcaemia [Recovering/Resolving]
  - Underdose [Unknown]

NARRATIVE: CASE EVENT DATE: 2018
